FAERS Safety Report 23756878 (Version 3)
Quarter: 2025Q3

REPORT INFORMATION
  Report Type: Spontaneous
  Country: US (occurrence: US)
  Receive Date: 20240418
  Receipt Date: 20250908
  Transmission Date: 20251021
  Serious: No
  Sender: SANOFI AVENTIS
  Company Number: US-SA-SAC20240415000310

PATIENT
  Age: 77 Year
  Sex: Female

DRUGS (3)
  1. DUPIXENT [Suspect]
     Active Substance: DUPILUMAB
     Indication: Neurodermatitis
     Dosage: 300 MG, QOW
     Route: 058
  2. DUPIXENT [Suspect]
     Active Substance: DUPILUMAB
     Indication: Dermatitis atopic
  3. OZEMPIC [Suspect]
     Active Substance: SEMAGLUTIDE
     Dates: end: 202505

REACTIONS (9)
  - Dry skin [Unknown]
  - Peripheral swelling [Unknown]
  - Wound complication [Recovered/Resolved]
  - Decreased appetite [Unknown]
  - Skin discolouration [Unknown]
  - Alopecia [Not Recovered/Not Resolved]
  - Gingival disorder [Unknown]
  - Abdominal pain upper [Not Recovered/Not Resolved]
  - Injection site bruising [Recovered/Resolved]

NARRATIVE: CASE EVENT DATE: 20250101
